FAERS Safety Report 15864394 (Version 1)
Quarter: 2019Q1

REPORT INFORMATION
  Report Type: Spontaneous
  Country: US (occurrence: US)
  Receive Date: 20190124
  Receipt Date: 20190124
  Transmission Date: 20190417
  Serious: No
  Sender: FDA-Public Use
  Company Number: US-ASTRAZENECA-2019SE08197

PATIENT
  Age: 19185 Day
  Sex: Female
  Weight: 75.8 kg

DRUGS (2)
  1. BRILINTA [Suspect]
     Active Substance: TICAGRELOR
     Indication: CEREBROVASCULAR ACCIDENT
     Route: 048
     Dates: start: 20190108, end: 20190110
  2. BRILINTA [Suspect]
     Active Substance: TICAGRELOR
     Indication: CADASIL
     Route: 048
     Dates: start: 20190108, end: 20190110

REACTIONS (5)
  - Off label use [Unknown]
  - Product use issue [Unknown]
  - Migraine [Recovered/Resolved]
  - Headache [Not Recovered/Not Resolved]
  - Blood pressure increased [Not Recovered/Not Resolved]

NARRATIVE: CASE EVENT DATE: 20190109
